FAERS Safety Report 9122640 (Version 1)
Quarter: 2013Q1

REPORT INFORMATION
  Report Type: Spontaneous
  Country: US (occurrence: US)
  Receive Date: 20130114
  Receipt Date: 20130114
  Transmission Date: 20140127
  Serious: Yes (Hospitalization)
  Sender: FDA-Public Use
  Company Number: US-PFIZER INC-2013013344

PATIENT
  Age: 54 Year
  Sex: Female
  Weight: 62.59 kg

DRUGS (2)
  1. CHANTIX [Suspect]
     Indication: SMOKING CESSATION THERAPY
     Dosage: UNK
     Dates: start: 20130101, end: 20130104
  2. ALBUTEROL [Concomitant]
     Indication: CHRONIC OBSTRUCTIVE PULMONARY DISEASE
     Dosage: UNK, AS NEEDED

REACTIONS (9)
  - Loss of consciousness [Unknown]
  - Rib fracture [Unknown]
  - Accident [Unknown]
  - Thermal burn [Not Recovered/Not Resolved]
  - Skin lesion [Unknown]
  - Laceration [Unknown]
  - Mass [Unknown]
  - Contusion [Not Recovered/Not Resolved]
  - Dehydration [Unknown]
